FAERS Safety Report 6566719-1 (Version None)
Quarter: 2010Q1

REPORT INFORMATION
  Report Type: 
  Country: None (occurrence: None)
  Receive Date: 20100202
  Receipt Date: 20100119
  Transmission Date: 20100710
  Serious: Yes (Hospitalization)
  Sender: FDA-Public Use
  Company Number: US-MYLANLABS-2010S1000851

PATIENT
  Age: 20 Year
  Sex: Female

DRUGS (5)
  1. IBUPROFEN [Suspect]
  2. EPINEPHRINE [Concomitant]
  3. BENADRYL [Concomitant]
  4. SOLU-MEDROL [Concomitant]
     Route: 042
  5. PREDNISONE [Concomitant]

REACTIONS (4)
  - CHEST PAIN [None]
  - DYSPNOEA [None]
  - KOUNIS SYNDROME [None]
  - RASH MACULO-PAPULAR [None]
